FAERS Safety Report 4715652-6 (Version None)
Quarter: 2005Q3

REPORT INFORMATION
  Report Type: 
  Country: None (occurrence: None)
  Receive Date: 20050713
  Receipt Date: 20050627
  Transmission Date: 20060218
  Serious: Yes (Hospitalization)
  Sender: FDA-Public Use
  Company Number: 280002M05JPN

PATIENT
  Age: 28 Year
  Sex: Female
  Weight: 50 kg

DRUGS (4)
  1. METRODIN [Suspect]
     Indication: OVULATION INDUCTION
     Dosage: SEE IMAGE
     Route: 058
     Dates: start: 20050602, end: 20050602
  2. METRODIN [Suspect]
     Indication: OVULATION INDUCTION
     Dosage: SEE IMAGE
     Route: 058
     Dates: start: 20050603, end: 20050603
  3. SUPRECUR NASAL SPRAY (BUSERELIN ACETATE) [Suspect]
     Indication: IN VITRO FERTILISATION
     Dosage: 600 MCG, 3 IN 1 DAYS, NASAL
     Route: 045
     Dates: start: 20050531, end: 20050605
  4. HUMEGON [Suspect]
     Indication: OVULATION INDUCTION
     Dosage: 150 IU, 1 IN 1 DAYS, INTRAMUSCULAR
     Route: 030
     Dates: start: 20050604, end: 20050605

REACTIONS (10)
  - ARTHRALGIA [None]
  - BLOOD ALKALINE PHOSPHATASE DECREASED [None]
  - GAMMA-GLUTAMYLTRANSFERASE DECREASED [None]
  - HEADACHE [None]
  - HEPATIC FUNCTION ABNORMAL [None]
  - LEUKOPENIA [None]
  - LYMPHOCYTE COUNT DECREASED [None]
  - PYREXIA [None]
  - THROMBOCYTOPENIA [None]
  - UPPER RESPIRATORY TRACT INFECTION [None]
